FAERS Safety Report 7939460-8 (Version None)
Quarter: 2011Q4

REPORT INFORMATION
  Report Type: 
  Country: None (occurrence: None)
  Receive Date: 20111125
  Receipt Date: 20111118
  Transmission Date: 20120403
  Serious: Yes (Hospitalization)
  Sender: FDA-Public Use
  Company Number: JP-ROCHE-1013147

PATIENT
  Sex: Male
  Weight: 51 kg

DRUGS (11)
  1. COPEGUS [Suspect]
     Route: 048
     Dates: start: 20110906, end: 20110915
  2. FAMOTIDINE [Concomitant]
     Indication: GASTRITIS
     Route: 048
     Dates: start: 20110412
  3. PEGASYS [Suspect]
     Route: 058
     Dates: start: 20110906, end: 20110927
  4. COPEGUS [Suspect]
     Indication: HEPATIC CIRRHOSIS
     Route: 048
     Dates: start: 20110903, end: 20110909
  5. COPEGUS [Suspect]
     Route: 048
     Dates: start: 20110910, end: 20110916
  6. COPEGUS [Suspect]
     Route: 048
     Dates: start: 20110920, end: 20110928
  7. COPEGUS [Suspect]
     Route: 048
     Dates: start: 20110917, end: 20110924
  8. MAGMITT [Concomitant]
     Indication: CONSTIPATION
     Route: 048
     Dates: start: 20110412
  9. PEGASYS [Suspect]
     Indication: HEPATIC CIRRHOSIS
     Route: 058
     Dates: start: 20110903, end: 20110924
  10. FERROUS CITRATE [Concomitant]
     Indication: ANAEMIA
     Route: 048
     Dates: start: 20110412
  11. COPEGUS [Suspect]
     Route: 048
     Dates: start: 20110916, end: 20110919

REACTIONS (2)
  - FUNGAL INFECTION [None]
  - ANAEMIA [None]
